FAERS Safety Report 8614161 (Version 2)
Quarter: 2012Q4

REPORT INFORMATION
  Report Type: 
  Country: ES (occurrence: ES)
  Receive Date: 20120614
  Receipt Date: 20121015
  Transmission Date: 20130627
  Serious: Yes (Other)
  Sender: FDA-Public Use
  Company Number: PHHY2012ES050147

PATIENT
  Age: 63 Year
  Sex: Female

DRUGS (2)
  1. TASIGNA [Suspect]
     Dosage: UNK
     Dates: start: 201108
  2. DASATINIB [Concomitant]

REACTIONS (1)
  - Acute myocardial infarction [Unknown]
